FAERS Safety Report 5150609-5 (Version None)
Quarter: 2006Q4

REPORT INFORMATION
  Report Type: 
  Country: None (occurrence: None)
  Receive Date: 20061114
  Receipt Date: 20061023
  Transmission Date: 20070319
  Serious: Yes (Other)
  Sender: FDA-Public Use
  Company Number: GB-BRISTOL-MYERS SQUIBB COMPANY-13551171

PATIENT
  Age: 43 Year
  Sex: Male

DRUGS (9)
  1. CYCLOPHOSPHAMIDE [Suspect]
     Indication: BURKITT'S LYMPHOMA
     Dates: start: 19980101, end: 19980901
  2. METHOTREXATE [Suspect]
     Indication: BURKITT'S LYMPHOMA
     Dates: start: 19980101, end: 19980901
  3. DOXORUBICIN HCL [Suspect]
     Indication: BURKITT'S LYMPHOMA
     Dates: start: 19980101, end: 19980901
  4. VINCRISTINE [Suspect]
     Indication: BURKITT'S LYMPHOMA
     Dates: start: 19980101, end: 19980901
  5. PREDNISOLONE [Concomitant]
  6. CYTARABINE [Concomitant]
  7. HYDROCORTISONE [Concomitant]
  8. RITONAVIR [Concomitant]
  9. SAQUINAVIR [Concomitant]

REACTIONS (7)
  - BACK PAIN [None]
  - COMPRESSION FRACTURE [None]
  - JOINT SWELLING [None]
  - MULTIPLE FRACTURES [None]
  - OSTEONECROSIS [None]
  - OSTEOPOROSIS [None]
  - SPINAL COMPRESSION FRACTURE [None]
